FAERS Safety Report 20031599 (Version 3)
Quarter: 2021Q4

REPORT INFORMATION
  Report Type: Report from Study
  Country: CN (occurrence: CN)
  Receive Date: 20211103
  Receipt Date: 20211217
  Transmission Date: 20220303
  Serious: Yes (Death, Life-Threatening, Hospitalization)
  Sender: FDA-Public Use
  Company Number: CN-ABBVIE-21P-035-4134358-00

PATIENT
  Age: 57 Year
  Sex: Male
  Weight: 71.5 kg

DRUGS (7)
  1. VENETOCLAX [Suspect]
     Active Substance: VENETOCLAX
     Indication: Plasma cell myeloma
     Route: 048
     Dates: start: 20210709, end: 20211022
  2. DEXAMETHASONE [Suspect]
     Active Substance: DEXAMETHASONE
     Indication: Plasma cell myeloma
     Dosage: DAYS 1, 8, 15, AND 22 OF EACH 28 DAY CYCLE
     Route: 048
     Dates: start: 20210709, end: 20211020
  3. METHYLCOBALAMIN [Concomitant]
     Active Substance: METHYLCOBALAMIN
     Indication: Neuropathy peripheral
     Route: 048
     Dates: start: 20200618
  4. METHYLCOBALAMIN [Concomitant]
     Active Substance: METHYLCOBALAMIN
     Indication: Asthenia
  5. ACYCLOVIR [Concomitant]
     Active Substance: ACYCLOVIR
     Indication: Antiviral treatment
     Route: 048
     Dates: start: 20210603
  6. WEIXUENING KELI [Concomitant]
     Indication: Immune thrombocytopenia
     Dosage: 1 BAG
     Route: 048
     Dates: start: 20210705
  7. POTASSIUM CITRATE [Concomitant]
     Active Substance: POTASSIUM CITRATE
     Indication: Hypokalaemia
     Route: 048
     Dates: start: 20210903

REACTIONS (7)
  - Internal haemorrhage [Fatal]
  - Hypoproteinaemia [Recovered/Resolved]
  - Cardiac failure [Not Recovered/Not Resolved]
  - Metabolic acidosis [Not Recovered/Not Resolved]
  - Thrombocytopenia [Not Recovered/Not Resolved]
  - Activated partial thromboplastin time [Not Recovered/Not Resolved]
  - Nausea [Not Recovered/Not Resolved]

NARRATIVE: CASE EVENT DATE: 20211024
